FAERS Safety Report 8567075-X (Version None)
Quarter: 2012Q3

REPORT INFORMATION
  Report Type: 
  Country: None (occurrence: None)
  Receive Date: 20120730
  Receipt Date: 20120730
  Transmission Date: 20120928
  Serious: Yes (Disabling)
  Sender: FDA-Public Use
  Company Number: None

PATIENT
  Age: 45 Year
  Sex: Male
  Weight: 74.8435 kg

DRUGS (3)
  1. BENADRYL [Concomitant]
  2. IBUPPROFEN [Concomitant]
  3. ATORVASTATIN [Suspect]
     Indication: BLOOD CHOLESTEROL INCREASED
     Dosage: 10MG 1 PER DAY PO
     Route: 048
     Dates: start: 20111101, end: 20120723

REACTIONS (1)
  - ARTHRALGIA [None]
